FAERS Safety Report 11183850 (Version 1)
Quarter: 2015Q2

REPORT INFORMATION
  Report Type: Spontaneous
  Country: US (occurrence: US)
  Receive Date: 20150612
  Receipt Date: 20150612
  Transmission Date: 20150821
  Serious: No
  Sender: FDA-Public Use
  Company Number: US-EMD SERONO-8029213

PATIENT
  Age: 50 Year
  Sex: Female

DRUGS (1)
  1. SEROSTIM [Suspect]
     Active Substance: SOMATROPIN
     Indication: HIV WASTING SYNDROME
     Route: 058
     Dates: start: 201505, end: 201506

REACTIONS (3)
  - Peripheral swelling [Unknown]
  - Alopecia [Unknown]
  - Swelling face [Unknown]

NARRATIVE: CASE EVENT DATE: 201505
